FAERS Safety Report 4487802-0 (Version None)
Quarter: 2004Q4

REPORT INFORMATION
  Report Type: 
  Country: None (occurrence: None)
  Receive Date: 20041027
  Receipt Date: 20041027
  Transmission Date: 20050328
  Serious: No
  Sender: FDA-Public Use
  Company Number: None

PATIENT
  Age: 39 Year
  Sex: Female
  Weight: 92.0802 kg

DRUGS (2)
  1. METFORMIN HCL [Suspect]
     Indication: POLYCYSTIC OVARIES
     Dosage: 500MG BID
     Dates: start: 20040719, end: 20040929
  2. NUVARING [Concomitant]

REACTIONS (4)
  - ABDOMINAL DISTENSION [None]
  - HYPONATRAEMIA [None]
  - POLYURIA [None]
  - URINE OUTPUT DECREASED [None]
